FAERS Safety Report 11422030 (Version 1)
Quarter: 2015Q3

REPORT INFORMATION
  Report Type: Spontaneous
  Country: US (occurrence: US)
  Receive Date: 20150827
  Receipt Date: 20150827
  Transmission Date: 20151125
  Serious: Yes (Other)
  Sender: FDA-Public Use
  Company Number: US-AMGEN-USASP2015087004

PATIENT
  Age: 66 Year
  Sex: Male

DRUGS (1)
  1. ENBREL [Suspect]
     Active Substance: ETANERCEPT
     Indication: PSORIASIS
     Dosage: 25 MG, 2 TIMES/WK
     Route: 065

REACTIONS (5)
  - Root canal infection [Unknown]
  - Neoplasm malignant [Unknown]
  - Hepatitis B core antibody [Unknown]
  - Drug effect incomplete [Unknown]
  - Endodontic procedure [Unknown]

NARRATIVE: CASE EVENT DATE: 20150816
